FAERS Safety Report 5844256-7 (Version None)
Quarter: 2008Q3

REPORT INFORMATION
  Report Type: 
  Country: None (occurrence: None)
  Receive Date: 20080813
  Receipt Date: 20080730
  Transmission Date: 20090109
  Serious: Yes (Hospitalization, Other)
  Sender: FDA-Public Use
  Company Number: DE-GENENTECH-253416

PATIENT
  Sex: Female

DRUGS (5)
  1. MABTHERA [Suspect]
     Indication: B-CELL LYMPHOMA
     Dosage: 560 MG, UNK
     Route: 042
     Dates: start: 20070731, end: 20071026
  2. CYCLOPHOSPHAMIDE [Suspect]
     Indication: B-CELL LYMPHOMA
     Dosage: 1125 MG, UNK
     Route: 042
     Dates: start: 20070731, end: 20071026
  3. DOXORUBICIN HCL [Suspect]
     Indication: B-CELL LYMPHOMA
     Dosage: 75 MG, UNK
     Route: 042
     Dates: start: 20070731, end: 20071026
  4. VINCRISTINE [Suspect]
     Indication: B-CELL LYMPHOMA
     Dosage: 2 MG, UNK
     Route: 042
     Dates: start: 20070731, end: 20071026
  5. PREDNISOLONE [Suspect]
     Indication: B-CELL LYMPHOMA
     Dosage: 500 MG, UNK
     Route: 048
     Dates: start: 20070731, end: 20071026

REACTIONS (3)
  - CHOLESTASIS [None]
  - MYOPATHY [None]
  - NEUROPATHY PERIPHERAL [None]
